FAERS Safety Report 5027334-4 (Version None)
Quarter: 2006Q2

REPORT INFORMATION
  Report Type: 
  Country: None (occurrence: None)
  Receive Date: 20060612
  Receipt Date: 20060526
  Transmission Date: 20061013
  Serious: Yes (Hospitalization)
  Sender: FDA-Public Use
  Company Number: US-2006-006391

PATIENT
  Age: 76 Year
  Sex: Male
  Weight: 68 kg

DRUGS (45)
  1. CAMPATH [Suspect]
     Indication: CHRONIC LYMPHOCYTIC LEUKAEMIA
     Dosage: 30 MG/DAY D1-5 Q28 DAYS, SUBCUTANEOUS
     Route: 058
     Dates: start: 20060313, end: 20060317
  2. CAMPATH [Suspect]
     Indication: CHRONIC LYMPHOCYTIC LEUKAEMIA
     Dosage: 30 MG/DAY D1-5 Q28 DAYS, SUBCUTANEOUS
     Route: 058
     Dates: start: 20060501, end: 20060505
  3. FLUDARA [Suspect]
     Indication: CHRONIC LYMPHOCYTIC LEUKAEMIA
     Dosage: 20 MG/M2/D D1-5 Q28 DAYS, INTRAVENOUS
     Route: 042
     Dates: start: 20060313, end: 20060317
  4. FLUDARA [Suspect]
     Indication: CHRONIC LYMPHOCYTIC LEUKAEMIA
     Dosage: 20 MG/M2/D D1-5 Q28 DAYS, INTRAVENOUS
     Route: 042
     Dates: start: 20060501, end: 20060505
  5. BACTRIM [Concomitant]
  6. ALBUTEROL [Concomitant]
  7. PREDNISONE [Concomitant]
  8. ACYCLOVIR [Concomitant]
  9. ALLOPURINOL [Concomitant]
  10. DOCUSATE CALCIUM (DOCUSATE CALCIUM) [Concomitant]
  11. FERROUS SULFATE TAB [Concomitant]
  12. FLUCONAZOLE [Concomitant]
  13. FOLIC ACID [Concomitant]
  14. MULTIVITAMINS (RETINOL, PANTHENOL) [Concomitant]
  15. TERAZOSIN HYDROCHLORIDE [Concomitant]
  16. CIPROFLOXACIN [Concomitant]
  17. IMIPENEM (IMIPENEM) [Concomitant]
  18. OXYCODONE W/PARACETAMOL (OXYCODONE) [Concomitant]
  19. FINASTERIDE [Concomitant]
  20. EPOETIN ALFA (EPOETIN ALFA) [Concomitant]
  21. NEUPOGEN [Concomitant]
  22. FAMCICLOVIR (FAMCICLOVIR) [Concomitant]
  23. ACETAMINOPHEN [Concomitant]
  24. DIPHENHYDRAMINE HCL [Concomitant]
  25. SENNA (SENNA ALEXANDRINA) [Concomitant]
  26. ACETAMINOPHEN [Concomitant]
  27. FUROSEMIDE [Concomitant]
  28. LACTULOSE [Concomitant]
  29. VALACYCLOVIR [Concomitant]
  30. AZTREONAM (AZTREONAM) [Concomitant]
  31. OXYCODONE (OXYCODONE) [Concomitant]
  32. CASPOFUNGIN (CASPOFUNGIN) [Concomitant]
  33. VANCOMYCIN [Concomitant]
  34. FLUCONAZOLE [Concomitant]
  35. AVELOX [Concomitant]
  36. HEPARIN [Concomitant]
  37. IMMUNE GLOBULIN INTRAVENOUS (HUMAN) [Concomitant]
  38. HYDROCORTISONE [Concomitant]
  39. DIPHENHYDRAMINE HCL [Concomitant]
  40. LACTULOSE [Concomitant]
  41. ACETAMINOPHEN W/OXYCODONE (OXYCODONE HYDROCHLORIDE) [Concomitant]
  42. FLUCONAZOLE [Concomitant]
  43. GENTAMICIN [Concomitant]
  44. OXYCODONE (OXYCODONE) [Concomitant]
  45. LACTULOSE [Concomitant]

REACTIONS (16)
  - BLOOD CREATININE INCREASED [None]
  - BLOOD UREA INCREASED [None]
  - CATABOLIC STATE [None]
  - CONDITION AGGRAVATED [None]
  - GINGIVAL PAIN [None]
  - HAEMATOCRIT DECREASED [None]
  - HAEMOGLOBIN DECREASED [None]
  - HYPERKALAEMIA [None]
  - NAUSEA [None]
  - NEUTROPENIA [None]
  - PLATELET COUNT DECREASED [None]
  - PNEUMONIA BACTERIAL [None]
  - TUMOUR LYSIS SYNDROME [None]
  - URINARY RETENTION [None]
  - VOMITING [None]
  - WHITE BLOOD CELL COUNT DECREASED [None]
